FAERS Safety Report 8370284-6 (Version None)
Quarter: 2012Q2

REPORT INFORMATION
  Report Type: 
  Country: None (occurrence: None)
  Receive Date: 20120518
  Receipt Date: 20110930
  Transmission Date: 20120825
  Serious: No
  Sender: FDA-Public Use
  Company Number: US-ASTRAZENECA-2011SE66308

PATIENT
  Age: 63 Year
  Sex: Female

DRUGS (4)
  1. EVOXAC [Concomitant]
     Dosage: UNKNOWN
  2. COLOSPAN [Concomitant]
     Dosage: UNKNOWN
  3. PRILOSEC OTC [Suspect]
     Indication: ULCER
     Route: 048
     Dates: start: 20110926, end: 20110930
  4. SESTIN [Concomitant]
     Dosage: UNKNOWN

REACTIONS (5)
  - OROPHARYNGEAL PAIN [None]
  - CHEST PAIN [None]
  - BRADYPHRENIA [None]
  - OFF LABEL USE [None]
  - DIZZINESS [None]
